FAERS Safety Report 25189933 (Version 2)
Quarter: 2025Q2

REPORT INFORMATION
  Report Type: Other
  Country: US (occurrence: US)
  Receive Date: 20250411
  Receipt Date: 20250522
  Transmission Date: 20250717
  Serious: No
  Sender: ASCENT PHARMACEUTICALS INC
  Company Number: US-ASCENT-2025ASREG00024

PATIENT
  Sex: Male

DRUGS (1)
  1. DEXTROAMPHETAMINE SACCHARATE, AMPHETAMINE ASPARTATE, DEXTROAMPHETAMINE [Suspect]
     Active Substance: AMPHETAMINE ASPARTATE\AMPHETAMINE SULFATE\DEXTROAMPHETAMINE SACCHARATE\DEXTROAMPHETAMINE SULFATE
     Indication: Product used for unknown indication
     Route: 065

REACTIONS (8)
  - Abnormal sensation in eye [Unknown]
  - Vertigo [Unknown]
  - Disturbance in attention [Unknown]
  - Vision blurred [Unknown]
  - Irritability [Unknown]
  - Speech disorder [Unknown]
  - Tremor [Unknown]
  - Product substitution issue [Unknown]
